FAERS Safety Report 4796687-4 (Version None)
Quarter: 2005Q4

REPORT INFORMATION
  Report Type: 
  Country: None (occurrence: None)
  Receive Date: 20051007
  Receipt Date: 20050927
  Transmission Date: 20060501
  Serious: Yes (Other)
  Sender: FDA-Public Use
  Company Number: 2005134942

PATIENT
  Age: 34 Year
  Sex: Female

DRUGS (2)
  1. DOSTINEX [Suspect]
     Indication: HYPERPROLACTINAEMIA
     Dosage: 1MG /WEEKLY (0.5 MG), ORAL
     Route: 048
     Dates: start: 20010308
  2. FLUOXETINE [Concomitant]

REACTIONS (3)
  - ADRENAL CARCINOMA [None]
  - HEPATIC NEOPLASM MALIGNANT [None]
  - PANCREATIC CARCINOMA [None]
